FAERS Safety Report 6060527-6 (Version None)
Quarter: 2009Q1

REPORT INFORMATION
  Report Type: 
  Country: None (occurrence: None)
  Receive Date: 20090202
  Receipt Date: 20090120
  Transmission Date: 20090719
  Serious: Yes (Disabling, Other)
  Sender: FDA-Public Use
  Company Number: GB-RANBAXY-2009RR-21074

PATIENT
  Age: 61 Year
  Sex: Male
  Weight: 118 kg

DRUGS (5)
  1. AMOXICILLIN + CLAVULANATE POTASSIUM [Suspect]
     Indication: PHARYNGITIS
     Dosage: UNK
     Route: 042
     Dates: start: 20081230, end: 20081230
  2. ASPIRIN [Concomitant]
     Dosage: 75 MG, UNK
     Route: 048
  3. NITROGLYCERIN [Concomitant]
  4. LANSOPRAZOLE [Concomitant]
     Dosage: 30 MG, UNK
     Route: 048
  5. THIAMINE HCL [Concomitant]
     Dosage: 100 MG, UNK
     Route: 048

REACTIONS (3)
  - BLOOD PRESSURE DECREASED [None]
  - DYSPNOEA [None]
  - HEART RATE INCREASED [None]
